FAERS Safety Report 4938559-8 (Version None)
Quarter: 2006Q1

REPORT INFORMATION
  Report Type: 
  Country: None (occurrence: None)
  Receive Date: 20060306
  Receipt Date: 20060220
  Transmission Date: 20060701
  Serious: Yes (Hospitalization)
  Sender: FDA-Public Use
  Company Number: 2006028227

PATIENT
  Sex: Female

DRUGS (2)
  1. ZELDOX (CAPSULES)  (ZIPRASIDONE) [Suspect]
     Indication: SCHIZOPHRENIA, RESIDUAL TYPE
     Dosage: 120 MG, ORAL
     Route: 048
  2. ATOSIL (ISOPROMETHAZINE HYDROCHLORIDE) [Concomitant]

REACTIONS (5)
  - COGNITIVE DISORDER [None]
  - CONDITION AGGRAVATED [None]
  - DELUSION [None]
  - DRUG EFFECT DECREASED [None]
  - PSYCHOTIC DISORDER [None]
